FAERS Safety Report 7939349-4 (Version None)
Quarter: 2011Q4

REPORT INFORMATION
  Report Type: 
  Country: None (occurrence: None)
  Receive Date: 20111125
  Receipt Date: 20111114
  Transmission Date: 20120403
  Serious: Yes (Other)
  Sender: FDA-Public Use
  Company Number: US-BAYER-2011-018991

PATIENT
  Age: 35 Year
  Sex: Female
  Weight: 61.678 kg

DRUGS (9)
  1. AMBIEN [Concomitant]
     Dosage: DAILY DOSE 5 MG
     Route: 048
  2. LEVAQUIN [Concomitant]
     Dosage: DAILY
     Route: 048
  3. OXYCODONE HCL AND ACETAMINOPHEN [Concomitant]
     Dosage: 1 TAB/EVERY 4 HOURS, AS NEEDED
     Route: 048
  4. HYDROCODONE BITARTRATE [Concomitant]
  5. ACETAMINOPHEN [Concomitant]
  6. PROTONIX [Concomitant]
  7. MEDROXYPROGESTERONE [Concomitant]
     Dosage: UNK
     Dates: start: 20000101, end: 20100101
  8. YAZ [Suspect]
     Indication: CONTRACEPTION
     Dosage: UNK
     Route: 048
     Dates: start: 20080601, end: 20080901
  9. YAZ [Suspect]
     Indication: PREMENSTRUAL SYNDROME
     Dosage: UNK
     Dates: start: 20090101, end: 20091101

REACTIONS (6)
  - ANXIETY [None]
  - CHOLECYSTITIS CHRONIC [None]
  - PAIN [None]
  - GALLBLADDER INJURY [None]
  - INJURY [None]
  - EMOTIONAL DISTRESS [None]
